FAERS Safety Report 8985631 (Version 2)
Quarter: 2013Q1

REPORT INFORMATION
  Report Type: Spontaneous
  Country: US (occurrence: US)
  Receive Date: 20121226
  Receipt Date: 20130228
  Transmission Date: 20140127
  Serious: Yes (Other)
  Sender: FDA-Public Use
  Company Number: US-JNJFOC-20121207385

PATIENT
  Sex: Female

DRUGS (12)
  1. REMICADE [Suspect]
     Indication: COLITIS ULCERATIVE
     Route: 042
     Dates: start: 20070130
  2. ASACOL [Concomitant]
     Indication: COLITIS ULCERATIVE
     Route: 065
  3. ASPIRIN [Concomitant]
     Route: 065
  4. AVAPRO [Concomitant]
     Route: 065
  5. AZOPT [Concomitant]
     Route: 065
  6. ELMIRON [Concomitant]
     Route: 065
  7. FLUOXETINE [Concomitant]
     Route: 065
  8. HUMALOG [Concomitant]
     Route: 065
  9. ISTALOL [Concomitant]
     Route: 065
  10. NEXIUM [Concomitant]
     Route: 065
  11. NITROGLYCERIN [Concomitant]
     Route: 065
  12. VYTORIN [Concomitant]
     Route: 065

REACTIONS (1)
  - Tendon rupture [Recovering/Resolving]
